FAERS Safety Report 22040888 (Version 1)
Quarter: 2023Q1

REPORT INFORMATION
  Report Type: Spontaneous
  Country: None (occurrence: US)
  Receive Date: 20230227
  Receipt Date: 20230227
  Transmission Date: 20230418
  Serious: Yes (Other)
  Sender: FDA-Public Use
  Company Number: US-Central Admixture Pharmacy Services, Inc.-2138474

PATIENT

DRUGS (1)
  1. CALCIUM CHLORIDE\MAGNESIUM SULFATE\POTASSIUM CHLORIDE\SODIUM BICARBONA [Suspect]
     Active Substance: CALCIUM CHLORIDE\MAGNESIUM SULFATE\POTASSIUM CHLORIDE\SODIUM BICARBONATE\SODIUM CHLORIDE
     Route: 016
     Dates: start: 20230126, end: 20230126

REACTIONS (1)
  - Drug ineffective [Recovered/Resolved]

NARRATIVE: CASE EVENT DATE: 20230126
